FAERS Safety Report 10149298 (Version 2)
Quarter: 2014Q2

REPORT INFORMATION
  Report Type: Spontaneous
  Country: GB (occurrence: None)
  Receive Date: 20140430
  Receipt Date: 20140507
  Transmission Date: 20141212
  Serious: Yes (Death)
  Sender: FDA-Public Use
  Company Number: AMAG201400105

PATIENT
  Sex: 0

DRUGS (2)
  1. RIENSO [Suspect]
     Indication: IMAGING PROCEDURE
     Dosage: 10.5 ML, (315 MG) SINGLE, INTRAVENOUS
     Route: 042
     Dates: start: 20130205, end: 20130205
  2. BUSCOPAN (HYOSCINE BUTYLBROMIDE) [Concomitant]

REACTIONS (1)
  - Death [None]
